FAERS Safety Report 8444967 (Version 3)
Quarter: 2013Q2

REPORT INFORMATION
  Report Type: Spontaneous
  Country: JP (occurrence: None)
  Receive Date: 20120228
  Receipt Date: 20130612
  Transmission Date: 20140414
  Serious: Yes (Hospitalization)
  Sender: FDA-Public Use
  Company Number: 2012-000619

PATIENT
  Age: 79 Year
  Sex: Female

DRUGS (9)
  1. RISEDRONATE SODIUM [Suspect]
     Indication: OSTEOPOROSIS
     Route: 048
     Dates: end: 20101119
  2. NORVASC [Concomitant]
  3. MYONAL /00287502/ (EPIRIZOLE HYDROCHLORIDE) [Concomitant]
  4. CELECOXIB [Concomitant]
  5. ASPARA-CA (ASPARTATE CALCIUM) [Concomitant]
  6. ONEALFA (ALFACALCIDOL) [Concomitant]
  7. BLOPRESS (CANDESARTAN CILEXETIL) [Concomitant]
  8. TAKEPRON (LANSOPRAZOLE) [Concomitant]
  9. BENET (RISEDRONATE SODIUM) TABLET [Suspect]
     Route: 048
     Dates: start: 200411

REACTIONS (3)
  - FEMUR FRACTURE [None]
  - BONE PAIN [None]
  - Traumatic fracture [None]
